FAERS Safety Report 4482378-6 (Version None)
Quarter: 2004Q4

REPORT INFORMATION
  Report Type: 
  Country: None (occurrence: None)
  Receive Date: 20041022
  Receipt Date: 20031020
  Transmission Date: 20050328
  Serious: No
  Sender: FDA-Public Use
  Company Number: US-BRISTOL-MYERS SQUIBB COMPANY-12414884

PATIENT
  Age: 30 Year
  Sex: Female
  Weight: 74 kg

DRUGS (2)
  1. BUSPAR [Suspect]
     Indication: ANXIETY
     Dosage: 15 MG TABLET (1/2 TABLET = 7.5MG) TWICE DAILY
     Route: 048
     Dates: start: 20031017, end: 20031019
  2. MULTI-VITAMIN [Concomitant]

REACTIONS (2)
  - DIZZINESS [None]
  - MUSCLE TIGHTNESS [None]
